FAERS Safety Report 10336092 (Version 1)
Quarter: 2014Q3

REPORT INFORMATION
  Report Type: Spontaneous
  Country: US (occurrence: US)
  Receive Date: 20140723
  Receipt Date: 20140723
  Transmission Date: 20150326
  Serious: No
  Sender: FDA-Public Use
  Company Number: US-BRISTOL-MYERS SQUIBB COMPANY-19728542

PATIENT
  Age: 73 Year
  Sex: Female
  Weight: 50.34 kg

DRUGS (1)
  1. COUMADIN [Suspect]
     Active Substance: WARFARIN SODIUM
     Indication: ATRIAL FIBRILLATION
     Dosage: 1DF: ONE AND A HALF 5 MG COUMADIN TAB 5 TIMES A WEEK AND ONE 5 MG TAB TWICE A WEEK

REACTIONS (1)
  - Drug administration error [Unknown]
